FAERS Safety Report 6329327-3 (Version None)
Quarter: 2009Q3

REPORT INFORMATION
  Report Type: 
  Country: None (occurrence: None)
  Receive Date: 20090826
  Receipt Date: 20090825
  Transmission Date: 20100115
  Serious: Yes (Other)
  Sender: FDA-Public Use
  Company Number: A0803983A

PATIENT
  Age: 55 Year
  Sex: Female

DRUGS (2)
  1. ALLI [Suspect]
     Indication: WEIGHT LOSS DIET
     Route: 048
  2. BLOOD PRESSURE MEDICATION [Concomitant]

REACTIONS (2)
  - DEHYDRATION [None]
  - HEPATIC ENZYME INCREASED [None]
